FAERS Safety Report 14818386 (Version 3)
Quarter: 2018Q2

REPORT INFORMATION
  Report Type: Report from Study
  Country: JP (occurrence: JP)
  Receive Date: 20180427
  Receipt Date: 20180629
  Transmission Date: 20180711
  Serious: Yes (Death)
  Sender: FDA-Public Use
  Company Number: JP-AEGERION PHARMACEUTICAL, INC-AEGR003761

PATIENT

DRUGS (17)
  1. CRESTOR [Concomitant]
     Active Substance: ROSUVASTATIN CALCIUM
     Indication: LIPOATROPHY
     Dosage: 7.5 MG, QD
     Route: 048
     Dates: end: 20180213
  2. METRELEPTIN SHIONOGI [Suspect]
     Active Substance: METRELEPTIN
     Indication: LIPOATROPHY
     Dosage: 0.04 MG/KG, QD
     Route: 058
     Dates: start: 20131023, end: 20131112
  3. NOVORAPID [Concomitant]
     Active Substance: INSULIN ASPART
     Indication: LIPOATROPHY
     Dosage: 50 IU, QD
     Dates: start: 20141125, end: 20180213
  4. NOVORAPID [Concomitant]
     Active Substance: INSULIN ASPART
     Indication: LIPOATROPHY
     Dosage: 36 IU, QD
     Dates: end: 20141124
  5. UNASYN S [Concomitant]
     Active Substance: AMPICILLIN SODIUM\SULBACTAM SODIUM
     Indication: SUBCUTANEOUS ABSCESS
     Dosage: UNK
     Route: 042
     Dates: start: 20151121, end: 20151127
  6. METGLUCO [Concomitant]
     Active Substance: METFORMIN HYDROCHLORIDE
     Indication: LIPOATROPHY
     Dosage: 2250 MG, QD
     Route: 048
     Dates: end: 20180213
  7. BAYASPIRIN [Concomitant]
     Active Substance: ASPIRIN
     Indication: LIPOATROPHY
     Dosage: 200 MG, QD
     Route: 048
     Dates: end: 20180213
  8. PREMINENT [Concomitant]
     Active Substance: HYDROCHLOROTHIAZIDE\LOSARTAN POTASSIUM
     Indication: PRODUCT USED FOR UNKNOWN INDICATION
     Dosage: UNK
     Dates: end: 20180213
  9. AMLODIPINE [Concomitant]
     Active Substance: AMLODIPINE BESYLATE
     Indication: CONDITION AGGRAVATED
     Dosage: UNK
     Dates: start: 20170224, end: 20180213
  10. MAGLAX [Concomitant]
     Active Substance: MAGNESIUM OXIDE
     Indication: PRODUCT USED FOR UNKNOWN INDICATION
     Dosage: UNK
     Dates: end: 20180213
  11. SEIBULE [Concomitant]
     Active Substance: MIGLITOL
     Indication: LIPOATROPHY
     Dosage: 150 MG, QD
     Route: 048
     Dates: end: 20141124
  12. UNASYN [Concomitant]
     Active Substance: AMPICILLIN SODIUM\SULBACTAM SODIUM
     Indication: SUBCUTANEOUS ABSCESS
     Dosage: UNK
     Dates: start: 20151121, end: 20151203
  13. LOXONIN [Concomitant]
     Active Substance: LOXOPROFEN SODIUM
     Indication: SUBCUTANEOUS ABSCESS
     Dosage: UNK
     Dates: start: 20151121, end: 20151203
  14. METRELEPTIN SHIONOGI [Suspect]
     Active Substance: METRELEPTIN
     Dosage: 0.08 MG/KG, QD
     Route: 058
     Dates: start: 20131113, end: 20180213
  15. LEVEMIR [Concomitant]
     Active Substance: INSULIN DETEMIR
     Indication: LIPOATROPHY
     Dosage: 20 IU, QD
     Dates: end: 20141124
  16. AMLODIPINE [Concomitant]
     Active Substance: AMLODIPINE BESYLATE
     Indication: HYPERTENSION
     Dosage: UNK
     Dates: end: 20140805
  17. ALPEED [Concomitant]
     Active Substance: EPINASTINE HYDROCHLORIDE
     Indication: PRODUCT USED FOR UNKNOWN INDICATION
     Dosage: UNK
     Dates: end: 20180213

REACTIONS (6)
  - Decreased appetite [Not Recovered/Not Resolved]
  - Acute myocardial infarction [Fatal]
  - Hypertension [Recovering/Resolving]
  - Subcutaneous abscess [Recovered/Resolved]
  - Vitamin B12 decreased [Unknown]
  - Anaemia macrocytic [Not Recovered/Not Resolved]

NARRATIVE: CASE EVENT DATE: 20151121
